FAERS Safety Report 7190244-0 (Version None)
Quarter: 2010Q4

REPORT INFORMATION
  Report Type: 
  Country: None (occurrence: None)
  Receive Date: 20101223
  Receipt Date: 20101208
  Transmission Date: 20110411
  Serious: Yes (Other)
  Sender: FDA-Public Use
  Company Number: PHHY2010IT73954

PATIENT
  Sex: Female

DRUGS (4)
  1. DEFEROXAMINE MESYLATE [Suspect]
     Indication: THALASSAEMIA
     Dosage: 01 GM IN 10 ML PHYSIOLOGICAL SALINE DAILY
     Route: 058
  2. DEFEROXAMINE MESYLATE [Suspect]
     Dosage: 2.5 MG
  3. RED CELLS MAP [Concomitant]
     Dosage: 300 ML EVERY MONTH
  4. RED CELLS MAP [Concomitant]
     Dosage: 300 ML EVERY WEEK

REACTIONS (6)
  - ANOVULATORY CYCLE [None]
  - CAESAREAN SECTION [None]
  - CHORIOAMNIONITIS [None]
  - DRUG EXPOSURE DURING PREGNANCY [None]
  - HAEMOSIDEROSIS [None]
  - NORMAL NEWBORN [None]
